FAERS Safety Report 14853283 (Version 2)
Quarter: 2018Q2

REPORT INFORMATION
  Report Type: Spontaneous
  Country: US (occurrence: US)
  Receive Date: 20180507
  Receipt Date: 20180525
  Transmission Date: 20180711
  Serious: Yes (Hospitalization, Other)
  Sender: FDA-Public Use
  Company Number: US-IMPAX LABORATORIES, INC-2018-IPXL-01458

PATIENT
  Age: 87 Year
  Sex: Male
  Weight: 72 kg

DRUGS (16)
  1. OPTIVAR [Concomitant]
     Active Substance: AZELASTINE HYDROCHLORIDE
     Indication: CATARACT
     Dosage: 0.05 %, ONE DROP IN BOTH EYES TWICE DAILY
     Route: 047
  2. VITAMIN D [Concomitant]
     Active Substance: CHOLECALCIFEROL
     Indication: PRODUCT USED FOR UNKNOWN INDICATION
     Dosage: 1000 IU, DAILY
     Route: 048
  3. MACROBID [Concomitant]
     Active Substance: NITROFURANTOIN\NITROFURANTOIN MONOHYDRATE
     Indication: PRODUCT USED FOR UNKNOWN INDICATION
     Dosage: 100 MG, TWICE DAILY (WITH FOOD)
     Route: 048
  4. PRILOSEC [Concomitant]
     Active Substance: OMEPRAZOLE MAGNESIUM
     Indication: PRODUCT USED FOR UNKNOWN INDICATION
     Dosage: 20 MG, DAILY (BEFORE BREAKFAST)
     Route: 048
  5. RYTARY [Suspect]
     Active Substance: CARBIDOPA\LEVODOPA
     Indication: PARKINSON^S DISEASE
     Dosage: 36.25/145 MG, 2 CAPSULES 4 TIMES/DAY (4.00 AM, 8.30 AM, 1.00 PM, 5.30 PM),1 CAPSULE AT NIGHT (8 PM)
     Route: 048
     Dates: start: 2016
  6. TYLENOL [Concomitant]
     Active Substance: ACETAMINOPHEN
     Indication: PAIN
     Dosage: 325 MG, (650 MG, EVERY 6 HOURS AS NEEDED)
     Route: 048
  7. CLARITIN [Concomitant]
     Active Substance: LORATADINE
     Indication: PRODUCT USED FOR UNKNOWN INDICATION
     Dosage: 10 MG, DAILY (EVERY MORNING)
     Route: 048
  8. PIMAVANSERIN [Concomitant]
     Active Substance: PIMAVANSERIN
     Indication: PRODUCT USED FOR UNKNOWN INDICATION
     Dosage: 17 MG, DAILY
     Route: 048
     Dates: start: 20171102
  9. RYTARY [Suspect]
     Active Substance: CARBIDOPA\LEVODOPA
     Dosage: 36.25/145 MG, 3 CAPSULES AT 6 AM, 3 CAPSULES AT 11 AM, 2 CAPSULES AT 4 PM AND 2 CAPSULES AT 8 PM
     Route: 048
     Dates: start: 20170425
  10. ASPIRIN EC [Concomitant]
     Active Substance: ASPIRIN
     Indication: PRODUCT USED FOR UNKNOWN INDICATION
     Dosage: 81 MG, DAILY (WITH FOOD)
     Route: 048
  11. ARTIFICIAL TEARS [Concomitant]
     Active Substance: GLYCERIN\HYPROMELLOSES\POLYETHYLENE GLYCOL 400
     Indication: CATARACT
     Dosage: FOUR TIMES DAILY AS NEEDED
     Route: 047
  12. SYNTHROID [Concomitant]
     Active Substance: LEVOTHYROXINE SODIUM
     Indication: PRODUCT USED FOR UNKNOWN INDICATION
     Dosage: 25 ?G, DAILY (30 MINUTES BEFORE BREAKFAST)
     Route: 048
  13. DITROPAN [Concomitant]
     Active Substance: OXYBUTYNIN CHLORIDE
     Indication: PRODUCT USED FOR UNKNOWN INDICATION
     Dosage: 10 MG, DAILY
     Route: 048
     Dates: start: 20171229
  14. FLOMAX [Concomitant]
     Active Substance: TAMSULOSIN HYDROCHLORIDE
     Indication: PRODUCT USED FOR UNKNOWN INDICATION
     Dosage: 0.4 MG, TWICE DAILY
     Route: 048
     Dates: start: 20171102
  15. EFFEXOR XR [Concomitant]
     Active Substance: VENLAFAXINE HYDROCHLORIDE
     Indication: PRODUCT USED FOR UNKNOWN INDICATION
     Dosage: 75 MG, TWO CAPSULES DAILY WITH FOOD
     Route: 048
  16. SENEXON-S [Concomitant]
     Active Substance: DOCUSATE SODIUM\SENNOSIDES A AND B
     Indication: PRODUCT USED FOR UNKNOWN INDICATION
     Dosage: 8.6/50 MG, TWICE DAILY
     Route: 048

REACTIONS (9)
  - Fall [Unknown]
  - Hypophagia [Unknown]
  - Weight decreased [Unknown]
  - Psychotic disorder [Unknown]
  - Hip fracture [Unknown]
  - Parkinson^s disease [Unknown]
  - Hallucination, visual [Unknown]
  - Dementia [Unknown]
  - Dyskinesia [Unknown]

NARRATIVE: CASE EVENT DATE: 201804
